FAERS Safety Report 5345456-5 (Version None)
Quarter: 2007Q2

REPORT INFORMATION
  Report Type: 
  Country: None (occurrence: None)
  Receive Date: 20070605
  Receipt Date: 20070524
  Transmission Date: 20071010
  Serious: Yes (Other)
  Sender: FDA-Public Use
  Company Number: CA-ELI_LILLY_AND_COMPANY-CA200705007144

PATIENT
  Age: 47 Year
  Sex: Female

DRUGS (5)
  1. FORTEO [Suspect]
     Indication: OSTEOPOROSIS
     Dosage: 20 UG, DAILY (1/D)
     Route: 058
     Dates: start: 20051006, end: 20070401
  2. DILANTIN [Concomitant]
  3. FOLIC ACID [Concomitant]
  4. CALCIUM CHLORIDE [Concomitant]
  5. VITAMIN D [Concomitant]

REACTIONS (4)
  - ABDOMINAL PAIN [None]
  - BONE DENSITY DECREASED [None]
  - DRUG INEFFECTIVE [None]
  - LIVER DISORDER [None]
